FAERS Safety Report 6634139-7 (Version None)
Quarter: 2010Q1

REPORT INFORMATION
  Report Type: 
  Country: None (occurrence: None)
  Receive Date: 20100315
  Receipt Date: 20100302
  Transmission Date: 20100710
  Serious: Yes (Hospitalization)
  Sender: FDA-Public Use
  Company Number: CH-ELI_LILLY_AND_COMPANY-CH201003001185

PATIENT

DRUGS (5)
  1. CYMBALTA [Suspect]
     Dosage: 90 MG, DAILY (1/D)
     Route: 064
  2. METHADONE HYDROCHLORIDE [Concomitant]
     Dosage: 60 MG, DAILY (1/D)
     Route: 064
     Dates: end: 20090811
  3. DIAMORPHINE [Concomitant]
     Dosage: UNK, UNKNOWN
     Route: 064
  4. TEMESTA [Concomitant]
     Dosage: UNK, UNKNOWN
     Route: 064
     Dates: end: 20090811
  5. SEROQUEL [Concomitant]
     Dosage: 125 MG, DAILY (1/D)
     Route: 064
     Dates: end: 20090811

REACTIONS (7)
  - CAESAREAN SECTION [None]
  - DRUG EXPOSURE DURING PREGNANCY [None]
  - DRUG WITHDRAWAL SYNDROME NEONATAL [None]
  - FOETAL GROWTH RETARDATION [None]
  - HYPERTENSION NEONATAL [None]
  - HYPOGLYCAEMIA NEONATAL [None]
  - MATERNAL DRUGS AFFECTING FOETUS [None]
